FAERS Safety Report 9215724 (Version 2)
Quarter: 2013Q2

REPORT INFORMATION
  Report Type: Spontaneous
  Country: CN (occurrence: CN)
  Receive Date: 20130408
  Receipt Date: 20130515
  Transmission Date: 20140414
  Serious: Yes (Hospitalization, Other)
  Sender: FDA-Public Use
  Company Number: CN-009507513-1303CHN013619

PATIENT
  Age: 26 Year
  Sex: Female

DRUGS (1)
  1. MARVELON (IN ROMAN AND CHINESE) [Suspect]
     Indication: CONTRACEPTION
     Dosage: 1 DF, QD
     Route: 048
     Dates: start: 201003

REACTIONS (5)
  - Ectopic pregnancy [Recovered/Resolved]
  - Abortion induced [Unknown]
  - Unintended pregnancy [Recovered/Resolved]
  - Exposure during pregnancy [None]
  - Pregnancy on oral contraceptive [None]
